FAERS Safety Report 18610119 (Version 1)
Quarter: 2020Q4

REPORT INFORMATION
  Report Type: Report from Study
  Country: EG (occurrence: EG)
  Receive Date: 20201214
  Receipt Date: 20201214
  Transmission Date: 20210114
  Serious: Yes (Other)
  Sender: FDA-Public Use
  Company Number: NVSC2020EG322369

PATIENT
  Sex: Female

DRUGS (2)
  1. GLIVEC [Suspect]
     Active Substance: IMATINIB MESYLATE
     Indication: CHRONIC MYELOID LEUKAEMIA
     Dosage: 400 MG, QD
     Route: 048
  2. TASIGNA [Suspect]
     Active Substance: NILOTINIB
     Indication: CHRONIC MYELOID LEUKAEMIA
     Dosage: 800 MG, QD
     Route: 048

REACTIONS (7)
  - Cytogenetic analysis abnormal [Unknown]
  - Hyperventilation [Recovered/Resolved]
  - Vitamin D decreased [Recovered/Resolved]
  - Alopecia [Recovering/Resolving]
  - Rash [Recovering/Resolving]
  - Bone pain [Recovered/Resolved]
  - Bone pain [Recovering/Resolving]
